FAERS Safety Report 6919298-0 (Version None)
Quarter: 2010Q3

REPORT INFORMATION
  Report Type: 
  Country: None (occurrence: None)
  Receive Date: 20100811
  Receipt Date: 20100804
  Transmission Date: 20110219
  Serious: Yes (Hospitalization)
  Sender: FDA-Public Use
  Company Number: A0866014A

PATIENT
  Age: 57 Year
  Sex: Female
  Weight: 96.4 kg

DRUGS (8)
  1. AVANDIA [Suspect]
     Dosage: 4MG PER DAY
     Route: 048
     Dates: start: 20011101, end: 20030301
  2. AVANDAMET [Suspect]
     Dosage: 1TAB PER DAY
     Route: 048
     Dates: start: 20030401, end: 20050101
  3. KLONOPIN [Concomitant]
  4. ABILIFY [Concomitant]
  5. REMERON [Concomitant]
  6. PAXIL CR [Concomitant]
  7. ADVAIR DISKUS 100/50 [Concomitant]
  8. NEXIUM [Concomitant]

REACTIONS (3)
  - ANXIETY [None]
  - CARDIAC FAILURE CONGESTIVE [None]
  - CEREBROVASCULAR ACCIDENT [None]
